FAERS Safety Report 22605512 (Version 6)
Quarter: 2023Q4

REPORT INFORMATION
  Report Type: Spontaneous
  Country: US (occurrence: US)
  Receive Date: 20230615
  Receipt Date: 20231205
  Transmission Date: 20240110
  Serious: No
  Sender: FDA-Public Use
  Company Number: US-BRISTOL-MYERS SQUIBB COMPANY-2023-084540

PATIENT
  Age: 76 Year
  Sex: Male
  Weight: 70.31 kg

DRUGS (2)
  1. REVLIMID [Suspect]
     Active Substance: LENALIDOMIDE
     Indication: Plasma cell myeloma
     Dosage: FREQUENCY: DAILY FOR 28 DAYS
     Route: 048
     Dates: start: 202205
  2. REVLIMID [Suspect]
     Active Substance: LENALIDOMIDE
     Indication: Plasma cell myeloma in remission
     Dosage: FREQUENCY:  21 DAYS ON AND 7DAYS OFF
     Route: 048

REACTIONS (12)
  - Fatigue [Unknown]
  - Constipation [Not Recovered/Not Resolved]
  - Brain fog [Unknown]
  - Peripheral swelling [Not Recovered/Not Resolved]
  - Spinal disorder [Unknown]
  - Weight decreased [Unknown]
  - Hypersensitivity [Unknown]
  - Cough [Unknown]
  - Condition aggravated [Unknown]
  - Oedema peripheral [Unknown]
  - Pain in extremity [Unknown]
  - Weight increased [Not Recovered/Not Resolved]

NARRATIVE: CASE EVENT DATE: 20220501
